FAERS Safety Report 17691271 (Version 1)
Quarter: 2020Q2

REPORT INFORMATION
  Report Type: Spontaneous
  Country: US (occurrence: US)
  Receive Date: 20200422
  Receipt Date: 20200422
  Transmission Date: 20200714
  Serious: Yes (Other)
  Sender: FDA-Public Use
  Company Number: US-HIKMA PHARMACEUTICALS USA INC.-US-H14001-20-01863

PATIENT
  Age: 58 Year
  Sex: Female

DRUGS (5)
  1. CALCITRIOL. [Suspect]
     Active Substance: CALCITRIOL
     Route: 065
     Dates: start: 201803, end: 201805
  2. CALCITRIOL. [Suspect]
     Active Substance: CALCITRIOL
     Indication: INFLUENZA LIKE ILLNESS
     Route: 065
     Dates: start: 201712, end: 20180222
  3. CALCITRIOL. [Suspect]
     Active Substance: CALCITRIOL
     Route: 065
     Dates: start: 20180105, end: 201805
  4. CALCITRIOL. [Suspect]
     Active Substance: CALCITRIOL
     Route: 065
     Dates: start: 20180105, end: 201805
  5. CALCITRIOL. [Suspect]
     Active Substance: CALCITRIOL
     Route: 065
     Dates: start: 20180105, end: 201805

REACTIONS (3)
  - Nephrolithiasis [Unknown]
  - Hypervitaminosis D [Not Recovered/Not Resolved]
  - Hypercalcaemia [Unknown]

NARRATIVE: CASE EVENT DATE: 201805
